FAERS Safety Report 11837150 (Version 1)
Quarter: 2015Q4

REPORT INFORMATION
  Report Type: Spontaneous
  Country: US (occurrence: US)
  Receive Date: 20151215
  Receipt Date: 20151215
  Transmission Date: 20160305
  Serious: No
  Sender: FDA-Public Use
  Company Number: GXBR2015US001274

PATIENT
  Sex: Female

DRUGS (1)
  1. HYDROXYZINE PAMOATE CAPSULES USP [Suspect]
     Active Substance: HYDROXYZINE PAMOATE
     Indication: STRESS
     Dosage: 25 MG, Q8H
     Route: 048
     Dates: start: 20150410, end: 20150413

REACTIONS (1)
  - Somnolence [Recovered/Resolved]

NARRATIVE: CASE EVENT DATE: 20150410
